FAERS Safety Report 8834032 (Version 1)
Quarter: 2012Q4

REPORT INFORMATION
  Report Type: 
  Country: US (occurrence: US)
  Receive Date: 20121010
  Receipt Date: 20121010
  Transmission Date: 20130627
  Serious: Yes (Hospitalization)
  Sender: FDA-Public Use
  Company Number: US-ABBOTT-12P-163-0990853-00

PATIENT
  Age: 60 Year
  Sex: Male

DRUGS (3)
  1. SIMCOR [Suspect]
     Indication: PRODUCT USED FOR UNKNOWN INDICATION
     Dosage: 500/20
     Dates: start: 20120927
  2. PERCOCET [Concomitant]
     Indication: PRODUCT USED FOR UNKNOWN INDICATION
  3. AZOR [Concomitant]
     Indication: HYPERTENSION

REACTIONS (1)
  - Renal failure acute [Not Recovered/Not Resolved]
